FAERS Safety Report 5958283-2 (Version None)
Quarter: 2008Q4

REPORT INFORMATION
  Report Type: 
  Country: None (occurrence: None)
  Receive Date: 20081117
  Receipt Date: 20081117
  Transmission Date: 20090506
  Serious: Yes (Other)
  Sender: FDA-Public Use
  Company Number: None

PATIENT
  Age: 29 Year
  Sex: Female
  Weight: 77.1115 kg

DRUGS (1)
  1. MIRENA [Suspect]
     Indication: CONTRACEPTION
     Dosage: CONTINUOUS INTRA-UTERINE
     Route: 015
     Dates: start: 20071127, end: 20080820

REACTIONS (8)
  - FIBROCYSTIC BREAST DISEASE [None]
  - INFECTION [None]
  - INFERTILITY FEMALE [None]
  - MALAISE [None]
  - MENORRHAGIA [None]
  - POLYMENORRHOEA [None]
  - THROMBOSIS [None]
  - UTERINE DISORDER [None]
